FAERS Safety Report 24296106 (Version 3)
Quarter: 2024Q3

REPORT INFORMATION
  Report Type: Spontaneous
  Country: NL (occurrence: NL)
  Receive Date: 20240909
  Receipt Date: 20240924
  Transmission Date: 20241017
  Serious: Yes (Other)
  Sender: CHATTEM
  Company Number: NL-OPELLA-2024OHG030723

PATIENT
  Age: 52 Year
  Sex: Female

DRUGS (21)
  1. XYZAL ALLERGY 24HR [Suspect]
     Active Substance: LEVOCETIRIZINE DIHYDROCHLORIDE
     Indication: Anaphylactic shock
     Dosage: PREMEDICATION (ON DAYS OF DESENSITIZATION)
  2. XYZAL ALLERGY 24HR [Suspect]
     Active Substance: LEVOCETIRIZINE DIHYDROCHLORIDE
     Indication: Prophylaxis
  3. XYZAL ALLERGY 24HR [Suspect]
     Active Substance: LEVOCETIRIZINE DIHYDROCHLORIDE
     Indication: Off label use
  4. DEXAMETHASONE [Suspect]
     Active Substance: DEXAMETHASONE
     Indication: Anaphylactic shock
     Dosage: AS CONSOLIDATION THERAPY
  5. DEXAMETHASONE [Suspect]
     Active Substance: DEXAMETHASONE
     Indication: Prophylaxis
     Dosage: PREMEDICATION (ON DAYS OF DESENSITIZATION)
  6. DEXAMETHASONE [Suspect]
     Active Substance: DEXAMETHASONE
     Indication: Plasma cell myeloma
     Dosage: NEW TREATMENT CYCLE WITH ISATUXIMAB AND POMALIDOMIDE
  7. DEXAMETHASONE [Suspect]
     Active Substance: DEXAMETHASONE
     Dosage: FOUR 28-DAY TREATMENT CYCLES OF INDUCTION THERAPY; (DAYS 1, 8, 15, AND 22)
  8. CARFILZOMIB [Suspect]
     Active Substance: CARFILZOMIB
     Indication: Plasma cell myeloma
     Dosage: FOUR 28-DAY TREATMENT CYCLES OF INDUCTION THERAPY; (DAYS 1, 8, AND 15)
     Route: 042
  9. CARFILZOMIB [Suspect]
     Active Substance: CARFILZOMIB
     Dosage: AS CONSOLIDATION THERAPY
  10. LENALIDOMIDE [Suspect]
     Active Substance: LENALIDOMIDE
     Indication: Plasma cell myeloma
     Dosage: AS CONSOLIDATION THERAPY
  11. LENALIDOMIDE [Suspect]
     Active Substance: LENALIDOMIDE
     Dosage: FOUR 28-DAY TREATMENT CYCLES OF INDUCTION THERAPY; DAYS 1-21
     Route: 048
  12. POMALIDOMIDE [Suspect]
     Active Substance: POMALIDOMIDE
     Indication: Plasma cell myeloma
     Dosage: WITH ISATUXIMAB AND DEXAMETHASONE
  13. MONTELUKAST [Suspect]
     Active Substance: MONTELUKAST SODIUM
     Indication: Prophylaxis
     Dosage: PREMEDICATION (ON DAYS OF DESENSITIZATION)
  14. MONTELUKAST [Suspect]
     Active Substance: MONTELUKAST SODIUM
     Indication: Anaphylactic shock
  15. ISATUXIMAB [Suspect]
     Active Substance: ISATUXIMAB
     Indication: Plasma cell myeloma
     Dosage: AS CONSOLIDATION THERAPY
  16. ISATUXIMAB [Suspect]
     Active Substance: ISATUXIMAB
     Dosage: DESENSITIZATION PROCEDURES 3 IV SOLUTIONS WERE PREPARED AND ISATUXIMAB WAS INCREMENTALLY ADMINISTERE
     Route: 042
  17. ISATUXIMAB [Suspect]
     Active Substance: ISATUXIMAB
     Dosage: A NEW TREATMENT CYCLE WITH POMALIDOMIDE AND DEXAMETHASONE
  18. ISATUXIMAB [Suspect]
     Active Substance: ISATUXIMAB
     Dosage: FOUR 28-DAY TREATMENT CYCLES OF INDUCTION THERAPY: FIRST CYCLE, DAYS 1, 8, 15, 22; CYCLES 2 TO 4, DA
  19. FAMOTIDINE [Suspect]
     Active Substance: FAMOTIDINE
     Indication: Prophylaxis
     Dosage: PREMEDICATION (ON DAYS OF DESENSITIZATION)
  20. FAMOTIDINE [Suspect]
     Active Substance: FAMOTIDINE
     Indication: Anaphylactic shock
  21. MELPHALAN [Concomitant]
     Active Substance: MELPHALAN
     Indication: Product used for unknown indication
     Route: 065

REACTIONS (3)
  - Anaphylactic shock [Recovered/Resolved]
  - Drug ineffective [Unknown]
  - Off label use [Unknown]
